FAERS Safety Report 26156710 (Version 1)
Quarter: 2025Q4

REPORT INFORMATION
  Report Type: Spontaneous
  Country: US (occurrence: None)
  Receive Date: 20251215
  Receipt Date: 20251215
  Transmission Date: 20260118
  Serious: No
  Sender: UCB
  Company Number: US-UCBSA-2025057879

PATIENT

DRUGS (5)
  1. BIMZELX [Suspect]
     Active Substance: BIMEKIZUMAB-BKZX
     Indication: Psoriasis
     Dosage: 320 MILLIGRAM, EV 4 WEEKS
  2. ALBUTEROL SU AER [Concomitant]
     Indication: Product used for unknown indication
     Dosage: UNK, ALBUTEROL SU AER 108 (90
  3. LOBETASOL P [Concomitant]
     Indication: Product used for unknown indication
     Dosage: UNK, LOBETASOL P CRE 0.05%
  4. MONTELUKAST [Concomitant]
     Active Substance: MONTELUKAST
     Indication: Product used for unknown indication
     Dosage: 10 MILLIGRAM
  5. SYMBICORT [Concomitant]
     Active Substance: BUDESONIDE\FORMOTEROL FUMARATE DIHYDRATE
     Indication: Product used for unknown indication
     Dosage: UNK, SYMBICORT AER 80-4.5MCG/A

REACTIONS (2)
  - Headache [Not Recovered/Not Resolved]
  - Depression [Not Recovered/Not Resolved]
